FAERS Safety Report 9433602 (Version 1)
Quarter: 2013Q3

REPORT INFORMATION
  Report Type: Spontaneous
  Country: CA (occurrence: CA)
  Receive Date: 20130731
  Receipt Date: 20130731
  Transmission Date: 20140515
  Serious: Yes (Hospitalization)
  Sender: FDA-Public Use
  Company Number: CA-009507513-1307CAN014468

PATIENT
  Sex: Female

DRUGS (2)
  1. VICTRELIS TRIPLE [Suspect]
     Indication: HEPATITIS C
     Dosage: 2400 MG, QD
     Route: 048
     Dates: start: 20130614, end: 20130724
  2. VICTRELIS TRIPLE [Suspect]
     Dosage: 120 MICROGRAM, QW
     Route: 058
     Dates: start: 20130614, end: 20130724

REACTIONS (12)
  - Knee arthroplasty [Not Recovered/Not Resolved]
  - Vomiting [Not Recovered/Not Resolved]
  - Abdominal pain [Not Recovered/Not Resolved]
  - Lip swelling [Not Recovered/Not Resolved]
  - Swollen tongue [Not Recovered/Not Resolved]
  - Ear pain [Not Recovered/Not Resolved]
  - Diarrhoea [Not Recovered/Not Resolved]
  - Dizziness [Not Recovered/Not Resolved]
  - Oral herpes [Not Recovered/Not Resolved]
  - Anger [Not Recovered/Not Resolved]
  - Gait disturbance [Not Recovered/Not Resolved]
  - Nausea [Not Recovered/Not Resolved]
